FAERS Safety Report 11213157 (Version 1)
Quarter: 2015Q2

REPORT INFORMATION
  Report Type: Spontaneous
  Country: US (occurrence: US)
  Receive Date: 20150623
  Receipt Date: 20150623
  Transmission Date: 20150821
  Serious: No
  Sender: FDA-Public Use
  Company Number: US-TARO-2014TAR00305

PATIENT
  Age: 5 Year
  Sex: Male
  Weight: 19.48 kg

DRUGS (7)
  1. CETIRIZINE HCL [Suspect]
     Active Substance: CETIRIZINE HYDROCHLORIDE
     Indication: BRONCHIAL DISORDER
     Dosage: 0.5 TSP, UNK
     Route: 048
     Dates: end: 20140830
  2. CLARITIN [Suspect]
     Active Substance: LORATADINE
     Indication: BRONCHIAL DISORDER
     Dosage: 1 TSP, ONCE
     Route: 048
     Dates: start: 20140830, end: 20140830
  3. CLARITIN [Suspect]
     Active Substance: LORATADINE
     Indication: URTICARIA
  4. CETIRIZINE HCL [Suspect]
     Active Substance: CETIRIZINE HYDROCHLORIDE
     Indication: HYPERSENSITIVITY
     Dosage: 0.5 TSP, ONCE
     Route: 048
     Dates: start: 20140830, end: 20140830
  5. ALBUTEROL NEBULIZER [Concomitant]
     Active Substance: ALBUTEROL
     Dosage: 1 DOSAGE UNITS, UNK
  6. CLARITIN [Suspect]
     Active Substance: LORATADINE
     Indication: HYPERSENSITIVITY
  7. CETIRIZINE HCL [Suspect]
     Active Substance: CETIRIZINE HYDROCHLORIDE
     Indication: URTICARIA

REACTIONS (4)
  - Somnolence [Recovered/Resolved]
  - Feeling abnormal [Recovered/Resolved]
  - Accidental overdose [Recovered/Resolved]
  - Epistaxis [Recovered/Resolved]

NARRATIVE: CASE EVENT DATE: 20140830
